FAERS Safety Report 8919487 (Version 1)
Quarter: 2012Q4

REPORT INFORMATION
  Report Type: 
  Country: US (occurrence: US)
  Receive Date: 20121121
  Receipt Date: 20121121
  Transmission Date: 20130627
  Serious: No
  Sender: FDA-Public Use
  Company Number: US-009507513-1211USA008063

PATIENT
  Age: 5 Year
  Sex: Male
  Weight: 20.41 kg

DRUGS (2)
  1. CLARITIN CHEWABLE TABLETS [Suspect]
     Indication: SEASONAL ALLERGY
     Dosage: 5 mg, qpm
     Route: 048
     Dates: start: 20120919
  2. CLARITIN CHEWABLE TABLETS [Suspect]
     Dosage: 15 mg, Once
     Route: 048
     Dates: start: 20120920

REACTIONS (2)
  - Accidental exposure to product by child [Unknown]
  - Overdose [Unknown]
